FAERS Safety Report 9614516 (Version 1)
Quarter: 2013Q4

REPORT INFORMATION
  Report Type: Spontaneous
  Country: US (occurrence: None)
  Receive Date: 20131009
  Receipt Date: 20131009
  Transmission Date: 20140711
  Serious: No
  Sender: FDA-Public Use
  Company Number: None

PATIENT
  Age: 65 Year
  Sex: Male
  Weight: 71.9 kg

DRUGS (1)
  1. GENTAMICIN [Suspect]
     Indication: ANTIBIOTIC PROPHYLAXIS
     Route: 030
     Dates: start: 20130508, end: 20130508

REACTIONS (5)
  - Loss of consciousness [None]
  - Bradycardia [None]
  - Hypotension [None]
  - Injection site pain [None]
  - Syncope [None]
